FAERS Safety Report 7749405 (Version 2)
Quarter: 2013Q3

REPORT INFORMATION
  Report Type: Report from Study
  Country: US (occurrence: US)
  Receive Date: 20110105
  Receipt Date: 20130724
  Transmission Date: 20140515
  Serious: Yes (Hospitalization)
  Sender: FDA-Public Use
  Company Number: US-ABBOTT-10P-163-0694176-00

PATIENT
  Sex: Female
  Weight: 71.73 kg

DRUGS (15)
  1. HUMIRA 40 MG/0.8 ML PEN [Suspect]
     Indication: RHEUMATOID ARTHRITIS
  2. METHOTREXATE [Concomitant]
     Indication: RHEUMATOID ARTHRITIS
     Dosage: WEEKLY
     Route: 050
  3. METFORMIN [Concomitant]
     Indication: DIABETES MELLITUS
  4. SIMVASTATIN [Concomitant]
     Indication: BLOOD CHOLESTEROL INCREASED
  5. WARFARIN [Concomitant]
     Indication: ATRIAL FIBRILLATION
     Dosage: 5MG 2D/WK;7.5MG 5D/WK
  6. MICARDIS [Concomitant]
     Indication: HYPERTENSION
  7. ASPIRIN [Concomitant]
     Indication: THROMBOSIS
     Dates: start: 2010
  8. ASPIRIN [Concomitant]
     Indication: ATRIAL FIBRILLATION
  9. OMEPRAZOLE [Concomitant]
     Indication: FLATULENCE
  10. OMEPRAZOLE [Concomitant]
     Indication: GASTROOESOPHAGEAL REFLUX DISEASE
  11. FOLIC ACID [Concomitant]
     Indication: VITAMIN SUPPLEMENTATION
  12. ACTONEL [Concomitant]
     Indication: OSTEOPOROSIS
  13. GLIPIZIDE [Concomitant]
     Indication: DIABETES MELLITUS
  14. MULTIVITAMIN [Concomitant]
     Indication: VITAMIN SUPPLEMENTATION
     Dosage: DAILY
  15. CALCIUM [Concomitant]
     Indication: MINERAL SUPPLEMENTATION
     Dosage: DAILY

REACTIONS (24)
  - Accident [Recovered/Resolved]
  - Femur fracture [Recovered/Resolved]
  - Postoperative thrombosis [Recovered/Resolved]
  - Sciatica [Not Recovered/Not Resolved]
  - Haematoma [Recovered/Resolved]
  - Limb asymmetry [Not Recovered/Not Resolved]
  - Laceration [Unknown]
  - Cholelithiasis [Unknown]
  - Back pain [Not Recovered/Not Resolved]
  - Muscle spasms [Not Recovered/Not Resolved]
  - Urinary tract infection [Recovering/Resolving]
  - Pyrexia [Recovered/Resolved]
  - Hypotension [Unknown]
  - Sinus disorder [Not Recovered/Not Resolved]
  - Laceration [Unknown]
  - Pain of skin [Unknown]
  - Lyme disease [Unknown]
  - Infection [Unknown]
  - Hypersensitivity [Not Recovered/Not Resolved]
  - Urinary tract infection [Not Recovered/Not Resolved]
  - Herpes zoster [Unknown]
  - Infection [Recovering/Resolving]
  - Arthralgia [Unknown]
  - Purulent discharge [Recovered/Resolved]
